FAERS Safety Report 8555971 (Version 2)
Quarter: 2013Q4

REPORT INFORMATION
  Report Type: Spontaneous
  Country: US (occurrence: US)
  Receive Date: 20120510
  Receipt Date: 20131216
  Transmission Date: 20140711
  Serious: Yes (Other)
  Sender: FDA-Public Use
  Company Number: US-BAYER-2012-044613

PATIENT
  Age: 32 Year
  Sex: Female

DRUGS (5)
  1. YAZ [Suspect]
     Dosage: UNK
     Dates: start: 2006, end: 2010
  2. YASMIN [Suspect]
     Dosage: UNK
     Dates: start: 2005, end: 2010
  3. OCELLA [Suspect]
     Dosage: UNK
     Dates: start: 2008, end: 2010
  4. GIANVI [Suspect]
     Dosage: UNK
     Dates: start: 20100610, end: 20110922
  5. BUPROPION [Concomitant]
     Dosage: 150 MG, UNK
     Route: 048
     Dates: start: 20100927

REACTIONS (8)
  - Cholecystectomy [None]
  - Cholelithiasis [None]
  - Injury [None]
  - Pain [None]
  - Emotional distress [None]
  - Depression [None]
  - Fear of death [None]
  - Nervousness [None]
